FAERS Safety Report 8897148 (Version 1)
Quarter: 2012Q4

REPORT INFORMATION
  Report Type: Spontaneous
  Country: US (occurrence: None)
  Receive Date: 20121031
  Receipt Date: 20121031
  Transmission Date: 20130627
  Serious: Yes (Death, Other)
  Sender: FDA-Public Use
  Company Number: 2012MA012476

PATIENT
  Age: 5 Year
  Sex: Female

DRUGS (4)
  1. LEVETIRACETAM [Suspect]
     Route: 048
  2. CARBAMAZEPINE [Concomitant]
  3. METOCLOPRAMIDE [Concomitant]
  4. MIRTAZAPINE [Concomitant]

REACTIONS (1)
  - Malformation venous [None]
